FAERS Safety Report 11476923 (Version 3)
Quarter: 2015Q4

REPORT INFORMATION
  Report Type: Report from Study
  Country: US (occurrence: US)
  Receive Date: 20150909
  Receipt Date: 20151027
  Transmission Date: 20160304
  Serious: No
  Sender: FDA-Public Use
  Company Number: US-AMGEN-USASP2015092282

PATIENT
  Age: 59 Year
  Sex: Female

DRUGS (1)
  1. ENBREL [Suspect]
     Active Substance: ETANERCEPT
     Indication: RHEUMATOID ARTHRITIS
     Dosage: 25 MG, UNK
     Route: 065
     Dates: start: 20150825

REACTIONS (6)
  - Tooth disorder [Not Recovered/Not Resolved]
  - Erythema [Not Recovered/Not Resolved]
  - Tooth extraction [Unknown]
  - Anxiety [Unknown]
  - Arthropod bite [Not Recovered/Not Resolved]
  - Endodontic procedure [Unknown]

NARRATIVE: CASE EVENT DATE: 2015
